FAERS Safety Report 18848273 (Version 2)
Quarter: 2021Q1

REPORT INFORMATION
  Report Type: Spontaneous
  Country: US (occurrence: US)
  Receive Date: 20210204
  Receipt Date: 20210204
  Transmission Date: 20210419
  Serious: No
  Sender: FDA-Public Use
  Company Number: US-GALDERMA-US2020036971

PATIENT
  Age: 35 Year
  Sex: Female

DRUGS (3)
  1. PROACTIV MD BALANCING TONER [Concomitant]
     Active Substance: COSMETICS
     Indication: ACNE
     Route: 061
     Dates: start: 20191018, end: 202006
  2. PROACTIV MD ADAPALENE ACNE TREATMENT [Suspect]
     Active Substance: ADAPALENE
     Indication: ACNE
     Dosage: 0.1%
     Route: 061
     Dates: start: 20191018, end: 202006
  3. PROACTIV MD DEEP CLEANSING FACE WASH [Concomitant]
     Active Substance: COSMETICS
     Indication: ACNE
     Route: 061
     Dates: start: 20191018, end: 202006

REACTIONS (2)
  - Product use issue [Recovered/Resolved]
  - Chemical burn of skin [Recovered/Resolved]

NARRATIVE: CASE EVENT DATE: 20191018
